FAERS Safety Report 11497157 (Version 1)
Quarter: 2015Q3

REPORT INFORMATION
  Report Type: Spontaneous
  Country: US (occurrence: None)
  Receive Date: 20150911
  Receipt Date: 20150911
  Transmission Date: 20151125
  Serious: No
  Sender: FDA-Public Use
  Company Number: US-MDT-ADR-2015-01772

PATIENT
  Age: 35 Year
  Sex: Female

DRUGS (2)
  1. BACLOFEN INTRATECAL [Suspect]
     Active Substance: BACLOFEN
     Dosage: UNK
  2. CLONIDINE. [Suspect]
     Active Substance: CLONIDINE
     Dosage: UNK

REACTIONS (1)
  - Overdose [None]
